FAERS Safety Report 4538733-9 (Version None)
Quarter: 2004Q4

REPORT INFORMATION
  Report Type: 
  Country: None (occurrence: None)
  Receive Date: 20041222
  Receipt Date: 20041206
  Transmission Date: 20050328
  Serious: Yes (Other)
  Sender: FDA-Public Use
  Company Number: USA041285339

PATIENT
  Age: 33 Year
  Sex: Female
  Weight: 98 kg

DRUGS (3)
  1. CYMBALTA [Suspect]
     Indication: MAJOR DEPRESSION
     Dates: start: 20041101, end: 20041205
  2. SEROQUEL [Concomitant]
  3. TYLENOL PM [Concomitant]

REACTIONS (7)
  - ANGIONEUROTIC OEDEMA [None]
  - BLOOD PRESSURE DIASTOLIC INCREASED [None]
  - DYSARTHRIA [None]
  - HEART RATE INCREASED [None]
  - OBSTRUCTIVE AIRWAYS DISORDER [None]
  - RESPIRATORY RATE INCREASED [None]
  - SWOLLEN TONGUE [None]
